FAERS Safety Report 23635133 (Version 2)
Quarter: 2024Q2

REPORT INFORMATION
  Report Type: Spontaneous
  Country: US (occurrence: US)
  Receive Date: 20240315
  Receipt Date: 20240402
  Transmission Date: 20240716
  Serious: Yes (Other)
  Sender: FDA-Public Use
  Company Number: US-TEVA-VS-3167514

PATIENT
  Age: 67 Year
  Sex: Male

DRUGS (7)
  1. CISPLATIN [Suspect]
     Active Substance: CISPLATIN
     Indication: Penile squamous cell carcinoma
     Dosage: FOUR CYCLES
     Route: 065
  2. ENFORTUMAB VEDOTIN [Suspect]
     Active Substance: ENFORTUMAB VEDOTIN
     Indication: Penile squamous cell carcinoma
     Dosage: ON DAYS 1, 8?AND 15 OF A 28 DAY CYCLE
     Route: 065
  3. IFOSFAMIDE [Suspect]
     Active Substance: IFOSFAMIDE
     Indication: Penile squamous cell carcinoma
     Dosage: FOUR CYCLES
     Route: 065
  4. GEMCITABINE [Suspect]
     Active Substance: GEMCITABINE
     Indication: Penile squamous cell carcinoma
     Dosage: 2 CYCLES
     Route: 065
  5. PEMBROLIZUMAB [Suspect]
     Active Substance: PEMBROLIZUMAB
     Indication: Penile squamous cell carcinoma
     Dosage: 3 CYCLES
     Route: 065
  6. PACLITAXEL [Suspect]
     Active Substance: PACLITAXEL
     Indication: Penile squamous cell carcinoma
     Dosage: FOUR CYCLES
     Route: 065
  7. PANITUMUMAB [Suspect]
     Active Substance: PANITUMUMAB
     Indication: Penile squamous cell carcinoma
     Dosage: 1 CYCLE
     Route: 065

REACTIONS (5)
  - Neuropathy peripheral [Unknown]
  - Drug ineffective [Unknown]
  - Drug intolerance [Unknown]
  - Rash [Recovering/Resolving]
  - Off label use [Unknown]
